FAERS Safety Report 4487720-8 (Version None)
Quarter: 2004Q4

REPORT INFORMATION
  Report Type: 
  Country: None (occurrence: None)
  Receive Date: 20041025
  Receipt Date: 20041015
  Transmission Date: 20050328
  Serious: Yes (Hospitalization)
  Sender: FDA-Public Use
  Company Number: HQWYE877718OCT04

PATIENT
  Age: 76 Year
  Sex: Female

DRUGS (11)
  1. EFFEXOR [Suspect]
     Indication: BIPOLAR DISORDER
     Dosage: 112.5 MG 2X PER 1 DAY; 75 MG 1X PER 1 DAY
     Route: 048
     Dates: start: 20040815, end: 20040101
  2. EFFEXOR [Suspect]
     Indication: DEPRESSION
     Dosage: 112.5 MG 2X PER 1 DAY; 75 MG 1X PER 1 DAY
     Route: 048
     Dates: start: 20040815, end: 20040101
  3. EFFEXOR [Suspect]
     Indication: BIPOLAR DISORDER
     Dosage: 112.5 MG 2X PER 1 DAY; 75 MG 1X PER 1 DAY
     Route: 048
     Dates: start: 20040101
  4. EFFEXOR [Suspect]
     Indication: DEPRESSION
     Dosage: 112.5 MG 2X PER 1 DAY; 75 MG 1X PER 1 DAY
     Route: 048
     Dates: start: 20040101
  5. PRIMPERAN TAB [Suspect]
     Indication: NAUSEA
     Dosage: 10 MG AS NECESSARY
     Route: 048
     Dates: start: 20040917, end: 20040930
  6. PRIMPERAN TAB [Suspect]
     Indication: VOMITING
     Dosage: 10 MG AS NECESSARY
     Route: 048
     Dates: start: 20040917, end: 20040930
  7. ZOCOR [Concomitant]
  8. LEXONTANIL (BROMAZEPAM) [Concomitant]
  9. DIGOXIN [Concomitant]
  10. BIOFLORIN (LACTOBACILLUS ACIDOPHILUS) [Concomitant]
  11. IMODIUM [Concomitant]

REACTIONS (12)
  - AMNESIA [None]
  - BLOOD CREATINE PHOSPHOKINASE INCREASED [None]
  - BLOOD PRESSURE INCREASED [None]
  - C-REACTIVE PROTEIN INCREASED [None]
  - CLONUS [None]
  - CONFUSIONAL STATE [None]
  - DRUG INTERACTION [None]
  - HYPERREFLEXIA [None]
  - PYREXIA [None]
  - SEROTONIN SYNDROME [None]
  - TACHYCARDIA [None]
  - WHITE BLOOD CELL COUNT INCREASED [None]
